FAERS Safety Report 10379577 (Version 1)
Quarter: 2014Q3

REPORT INFORMATION
  Report Type: Report from Study
  Country: US (occurrence: US)
  Receive Date: 20140812
  Receipt Date: 20140812
  Transmission Date: 20150326
  Serious: Yes (Hospitalization)
  Sender: FDA-Public Use
  Company Number: US-ABBVIE-14P-163-1268643-00

PATIENT
  Age: 23 Year
  Sex: Female

DRUGS (7)
  1. NORVIR [Suspect]
     Active Substance: RITONAVIR
     Route: 048
     Dates: start: 20130901
  2. TRUVADA [Suspect]
     Active Substance: EMTRICITABINE\TENOFOVIR DISOPROXIL FUMARATE
     Indication: ANTIRETROVIRAL THERAPY
     Route: 048
     Dates: start: 20130613
  3. RETROVIR [Suspect]
     Active Substance: ZIDOVUDINE
     Indication: ANTIRETROVIRAL THERAPY
     Route: 042
     Dates: start: 20131129, end: 20131129
  4. ISENTRESS [Suspect]
     Active Substance: RALTEGRAVIR POTASSIUM
     Indication: ANTIRETROVIRAL THERAPY
     Route: 048
     Dates: start: 20130613
  5. PREZISTA [Suspect]
     Active Substance: DARUNAVIR ETHANOLATE
     Indication: ANTIRETROVIRAL THERAPY
     Route: 048
     Dates: start: 20130627
  6. NORVIR [Suspect]
     Active Substance: RITONAVIR
     Indication: ANTIRETROVIRAL THERAPY
     Route: 048
     Dates: start: 20130627, end: 20130901
  7. PREZISTA [Suspect]
     Active Substance: DARUNAVIR ETHANOLATE
     Route: 048
     Dates: start: 20130901

REACTIONS (3)
  - Cardiac tamponade [Unknown]
  - Sepsis [Unknown]
  - Infarction [Unknown]

NARRATIVE: CASE EVENT DATE: 20131001
